FAERS Safety Report 6046874-2 (Version None)
Quarter: 2009Q1

REPORT INFORMATION
  Report Type: 
  Country: None (occurrence: None)
  Receive Date: 20090122
  Receipt Date: 20090119
  Transmission Date: 20090719
  Serious: Yes (Life-Threatening)
  Sender: FDA-Public Use
  Company Number: B0528109A

PATIENT
  Age: 28 Year
  Sex: Female

DRUGS (1)
  1. CLAMOXYL [Suspect]
     Dosage: 1G PER DAY
     Route: 048
     Dates: start: 20080506, end: 20080506

REACTIONS (11)
  - ANAPHYLACTIC REACTION [None]
  - ASPHYXIA [None]
  - DRUG EXPOSURE DURING PREGNANCY [None]
  - FEELING HOT [None]
  - HYPOTENSION [None]
  - LARYNGITIS [None]
  - MALAISE [None]
  - RASH [None]
  - SHOCK [None]
  - SKIN OEDEMA [None]
  - TACHYCARDIA [None]
